FAERS Safety Report 8972159 (Version 1)
Quarter: 2012Q4

REPORT INFORMATION
  Report Type: 
  Country: CA (occurrence: CA)
  Receive Date: 20121218
  Receipt Date: 20121218
  Transmission Date: 20130627
  Serious: Yes (Hospitalization)
  Sender: FDA-Public Use
  Company Number: CA-BRISTOL-MYERS SQUIBB COMPANY-17012329

PATIENT
  Age: 82 Year
  Sex: Male

DRUGS (11)
  1. SPRYCEL [Suspect]
     Indication: CHRONIC MYELOID LEUKAEMIA
     Route: 048
     Dates: start: 20111215, end: 20121210
  2. WARFARIN SODIUM [Suspect]
  3. LIPITOR [Concomitant]
  4. METOPROLOL [Concomitant]
  5. METFORMIN [Concomitant]
     Dates: end: 20120830
  6. ACTONEL [Concomitant]
  7. ALLOPURINOL [Concomitant]
  8. LASIX [Concomitant]
  9. SYNTHROID [Concomitant]
  10. PREDNISONE [Concomitant]
  11. TYLENOL #3 [Concomitant]
     Dosage: Q 6 hours.

REACTIONS (7)
  - Fatigue [Not Recovered/Not Resolved]
  - Decreased appetite [Not Recovered/Not Resolved]
  - Dehydration [Not Recovered/Not Resolved]
  - Rectal haemorrhage [Unknown]
  - Pleural effusion [Unknown]
  - Headache [Recovering/Resolving]
  - Back pain [Not Recovered/Not Resolved]
